FAERS Safety Report 9278883 (Version 1)
Quarter: 2013Q2

REPORT INFORMATION
  Report Type: Spontaneous
  Country: US (occurrence: None)
  Receive Date: 20130506
  Receipt Date: 20130506
  Transmission Date: 20140414
  Serious: Yes (Hospitalization)
  Sender: FDA-Public Use
  Company Number: None

PATIENT
  Age: 51 Year
  Sex: Male
  Weight: 98.3 kg

DRUGS (2)
  1. ASPIRIN [Suspect]
     Indication: PAIN
     Route: 048
     Dates: start: 20110831, end: 20130502
  2. NAPROXEN [Suspect]
     Indication: PAIN
     Route: 048
     Dates: start: 20110815, end: 20130501

REACTIONS (2)
  - Gastrointestinal haemorrhage [None]
  - Alcohol poisoning [None]
